FAERS Safety Report 11355265 (Version 2)
Quarter: 2015Q3

REPORT INFORMATION
  Report Type: Spontaneous
  Country: US (occurrence: US)
  Receive Date: 20150807
  Receipt Date: 20150813
  Transmission Date: 20151125
  Serious: No
  Sender: FDA-Public Use
  Company Number: ALCN2015US004565

PATIENT
  Sex: Female

DRUGS (2)
  1. LATANOPROST. [Suspect]
     Active Substance: LATANOPROST
     Dosage: 1 GTT, QD
     Route: 047
     Dates: start: 20150803
  2. LATANOPROST. [Suspect]
     Active Substance: LATANOPROST
     Indication: GLAUCOMA
     Dosage: 1 GTT, QHS
     Route: 047
     Dates: start: 201504, end: 20150719

REACTIONS (7)
  - Ocular hyperaemia [Recovered/Resolved]
  - Periorbital oedema [Recovering/Resolving]
  - Abnormal sensation in eye [Recovering/Resolving]
  - Anxiety [Recovering/Resolving]
  - Dark circles under eyes [Recovering/Resolving]
  - Eye pruritus [Recovering/Resolving]
  - Fatigue [Not Recovered/Not Resolved]
